FAERS Safety Report 12989362 (Version 1)
Quarter: 2016Q4

REPORT INFORMATION
  Report Type: Report from Study
  Country: US (occurrence: US)
  Receive Date: 20161201
  Receipt Date: 20161201
  Transmission Date: 20170207
  Serious: No
  Sender: FDA-Public Use
  Company Number: US-AMGEN-USASL2016168864

PATIENT
  Age: 44 Year
  Sex: Female

DRUGS (1)
  1. ENBREL [Suspect]
     Active Substance: ETANERCEPT
     Indication: ANKYLOSING SPONDYLITIS
     Dosage: 50 MG, QWK
     Route: 065

REACTIONS (6)
  - Headache [Unknown]
  - Wrong technique in product usage process [Unknown]
  - Injection site erythema [Unknown]
  - Injection site pruritus [Unknown]
  - Rash [Not Recovered/Not Resolved]
  - Injection site swelling [Unknown]

NARRATIVE: CASE EVENT DATE: 2016
